FAERS Safety Report 4474222-8 (Version None)
Quarter: 2004Q4

REPORT INFORMATION
  Report Type: 
  Country: None (occurrence: None)
  Receive Date: 20041008
  Receipt Date: 20040927
  Transmission Date: 20050328
  Serious: Yes (Congenital Anomaly)
  Sender: FDA-Public Use
  Company Number: HQWYE480223AUG04

PATIENT

DRUGS (18)
  1. EFFEXOR XR [Suspect]
     Indication: MAJOR DEPRESSION
     Dosage: 450 MG 1X PER 1 DAY, TRANSPLACENTAL
     Route: 064
     Dates: start: 20021113
  2. ABILIFY [Suspect]
     Indication: MAJOR DEPRESSION
     Dosage: SEE IMAGE, TRANSPLACENTAL
     Route: 064
     Dates: start: 20031010, end: 20031209
  3. ABILIFY [Suspect]
     Indication: MAJOR DEPRESSION
     Dosage: SEE IMAGE, TRANSPLACENTAL
     Route: 064
     Dates: start: 20031210, end: 20031229
  4. AMBIEN [Suspect]
     Indication: INSOMNIA
     Dosage: 20 MG 1X PER 1 DAY, TRANSPLACENTAL
     Route: 064
     Dates: start: 20031021, end: 20031229
  5. ATIVAN [Suspect]
     Indication: GENERALISED ANXIETY DISORDER
     Dosage: SEE IMAGE, TRANSPLACENTAL
     Route: 064
     Dates: end: 20020101
  6. ATIVAN [Suspect]
     Indication: PANIC DISORDER
     Dosage: SEE IMAGE, TRANSPLACENTAL
     Route: 064
     Dates: end: 20020101
  7. ATIVAN [Suspect]
     Indication: GENERALISED ANXIETY DISORDER
     Dosage: SEE IMAGE, TRANSPLACENTAL
     Route: 064
     Dates: start: 20040101, end: 20040101
  8. ATIVAN [Suspect]
     Indication: PANIC DISORDER
     Dosage: SEE IMAGE, TRANSPLACENTAL
     Route: 064
     Dates: start: 20040101, end: 20040101
  9. ATIVAN [Suspect]
     Indication: GENERALISED ANXIETY DISORDER
     Dosage: SEE IMAGE, TRANSPLACENTAL
     Route: 064
     Dates: end: 20040101
  10. ATIVAN [Suspect]
     Indication: PANIC DISORDER
     Dosage: SEE IMAGE, TRANSPLACENTAL
     Route: 064
     Dates: end: 20040101
  11. ATIVAN [Suspect]
     Indication: GENERALISED ANXIETY DISORDER
     Dosage: SEE IMAGE, TRANSPLACENTAL
     Route: 064
     Dates: start: 20040101
  12. ATIVAN [Suspect]
     Indication: PANIC DISORDER
     Dosage: SEE IMAGE, TRANSPLACENTAL
     Route: 064
     Dates: start: 20040101
  13. GABITRIL [Suspect]
     Indication: GENERALISED ANXIETY DISORDER
     Dosage: 12 MG 1X PER 1 DAY, TRANSPLACENTAL
     Route: 064
     Dates: start: 20030714, end: 20031229
  14. GABITRIL [Suspect]
     Indication: PANIC DISORDER
     Dosage: 12 MG 1X PER 1 DAY, TRANSPLACENTAL
     Route: 064
     Dates: start: 20030714, end: 20031229
  15. KLONOPIN [Suspect]
     Indication: GENERALISED ANXIETY DISORDER
     Dosage: 2 MG 1X PER 1 DAY, TRANSPLACENTAL
     Route: 064
     Dates: start: 20031210, end: 20031229
  16. KLONOPIN [Suspect]
     Indication: PANIC DISORDER
     Dosage: 2 MG 1X PER 1 DAY, TRANSPLACENTAL
     Route: 064
     Dates: start: 20031210, end: 20031229
  17. REMERON [Suspect]
     Indication: MAJOR DEPRESSION
     Dosage: SEE IMAGE, TRANSPLACENTAL
     Route: 064
     Dates: start: 20031030, end: 20040222
  18. REMERON [Suspect]
     Indication: MAJOR DEPRESSION
     Dosage: SEE IMAGE, TRANSPLACENTAL
     Route: 064
     Dates: start: 20040223

REACTIONS (6)
  - CAESAREAN SECTION [None]
  - CONGENITAL ECTOPIC BLADDER [None]
  - DRUG EXPOSURE DURING PREGNANCY [None]
  - MENINGOCELE [None]
  - MULTIPLE CONGENITAL ABNORMALITIES [None]
  - PREMATURE BABY [None]
